FAERS Safety Report 20317699 (Version 1)
Quarter: 2022Q1

REPORT INFORMATION
  Report Type: Other
  Country: CA (occurrence: None)
  Receive Date: 20220110
  Receipt Date: 20220110
  Transmission Date: 20220423
  Serious: Yes (Other)
  Sender: FDA-Public Use
  Company Number: CA-ROCHE-2998893

PATIENT

DRUGS (2)
  1. RITUXIMAB [Suspect]
     Active Substance: RITUXIMAB
     Indication: Non-Hodgkin^s lymphoma
     Dosage: GIVEN ON DAYS 1, 8, AND 15 OF CYCLE 1 AND ON DAY 1 THEREAFTER
     Route: 042
  2. SUBASUMSTAT [Suspect]
     Active Substance: SUBASUMSTAT
     Indication: Non-Hodgkin^s lymphoma
     Route: 042

REACTIONS (1)
  - Hypokalaemia [Unknown]
